FAERS Safety Report 16477565 (Version 2)
Quarter: 2019Q3

REPORT INFORMATION
  Report Type: Spontaneous
  Country: US (occurrence: US)
  Receive Date: 20190626
  Receipt Date: 20190729
  Transmission Date: 20191004
  Serious: Yes (Hospitalization, Other)
  Sender: FDA-Public Use
  Company Number: US-UCBSA-2019014479

PATIENT
  Age: 38 Year
  Sex: Female

DRUGS (1)
  1. CIMZIA [Suspect]
     Active Substance: CERTOLIZUMAB PEGOL
     Indication: CROHN^S DISEASE
     Dosage: 400 MG, MONTHLY (QM)
     Route: 058
     Dates: start: 20180504, end: 201904

REACTIONS (3)
  - Drug ineffective [Unknown]
  - Hospitalisation [Unknown]
  - Surgery [Unknown]

NARRATIVE: CASE EVENT DATE: 20190529
